FAERS Safety Report 9890694 (Version 1)
Quarter: 2014Q1

REPORT INFORMATION
  Report Type: Spontaneous
  Country: US (occurrence: None)
  Receive Date: 20140210
  Receipt Date: 20140210
  Transmission Date: 20141002
  Serious: Yes (Hospitalization, Other)
  Sender: FDA-Public Use
  Company Number: None

PATIENT
  Age: 16 Year
  Sex: Female
  Weight: 57.15 kg

DRUGS (1)
  1. L-CITRULLINE [Suspect]
     Indication: AMINO ACID METABOLISM DISORDER
     Dosage: 12 GRAMS?4 GRAMS 3 TIMESDAY?G-TUBE
     Dates: start: 20130820, end: 20130912

REACTIONS (10)
  - Alopecia [None]
  - Onychoclasis [None]
  - Skin odour abnormal [None]
  - Pallor [None]
  - Dry skin [None]
  - Fatigue [None]
  - Abdominal pain lower [None]
  - Vomiting [None]
  - Mental status changes [None]
  - Ammonia increased [None]
